FAERS Safety Report 6133605-0 (Version None)
Quarter: 2009Q1

REPORT INFORMATION
  Report Type: 
  Country: None (occurrence: None)
  Receive Date: 20090326
  Receipt Date: 20090316
  Transmission Date: 20090719
  Serious: Yes (Death, Hospitalization)
  Sender: FDA-Public Use
  Company Number: JP-BAXTER-2009BH004156

PATIENT
  Age: 45 Year
  Sex: Male

DRUGS (22)
  1. ENDOXAN BAXTER [Suspect]
     Indication: B-CELL LYMPHOMA
     Route: 041
     Dates: start: 20040319, end: 20040321
  2. ENDOXAN BAXTER [Suspect]
     Route: 041
     Dates: start: 20040427
  3. LASTET [Suspect]
     Indication: B-CELL LYMPHOMA
     Route: 041
     Dates: start: 20040319, end: 20040323
  4. LASTET [Suspect]
     Route: 041
     Dates: start: 20040427
  5. MAXIPIME [Suspect]
     Indication: FEBRILE NEUTROPENIA
     Route: 041
     Dates: start: 20040402, end: 20040407
  6. RITUXAN [Suspect]
     Indication: B-CELL LYMPHOMA
     Route: 042
     Dates: start: 20040319, end: 20040319
  7. RITUXAN [Suspect]
     Route: 042
     Dates: start: 20040427
  8. TOBRACIN [Suspect]
     Indication: FEBRILE NEUTROPENIA
     Route: 041
     Dates: start: 20040402, end: 20040407
  9. DEXAMETHASONE SODIUM PHOSPHATE [Suspect]
     Indication: B-CELL LYMPHOMA
     Route: 041
     Dates: start: 20040427
  10. DEXAMETHASONE SODIUM PHOSPHATE [Suspect]
     Route: 041
     Dates: start: 20040319, end: 20040323
  11. CYLOCIDE [Suspect]
     Indication: B-CELL LYMPHOMA
     Route: 041
     Dates: start: 20040427
  12. CYLOCIDE [Suspect]
     Route: 041
     Dates: start: 20040319, end: 20040323
  13. PENTCILLIN [Suspect]
     Indication: FEBRILE NEUTROPENIA
     Route: 041
     Dates: start: 20040329, end: 20040401
  14. AMIKACIN [Suspect]
     Indication: FEBRILE NEUTROPENIA
     Route: 041
     Dates: start: 20040329, end: 20040401
  15. GASTER D [Suspect]
     Indication: GASTRIC MUCOSAL LESION
     Route: 048
     Dates: start: 20040116, end: 20040407
  16. ALLOPURINOL [Suspect]
     Indication: TUMOUR LYSIS SYNDROME
     Route: 048
     Dates: start: 20040120, end: 20040407
  17. CYANOCOBALAMIN [Suspect]
     Indication: NEUROPATHY PERIPHERAL
     Route: 048
     Dates: start: 20040120, end: 20040407
  18. MARZULENE S [Suspect]
     Indication: NEUTROPHIL COUNT DECREASED
     Route: 048
     Dates: start: 20040116, end: 20040407
  19. DOXORUBICIN HCL [Suspect]
     Indication: B-CELL LYMPHOMA
     Route: 065
  20. VINCRISTINE SULFATE [Suspect]
     Indication: B-CELL LYMPHOMA
     Route: 065
  21. METHYLPREDNISOLONE 4MG TAB [Suspect]
     Indication: B-CELL LYMPHOMA
     Route: 065
  22. NEU-UP [Concomitant]
     Indication: DRUG USE FOR UNKNOWN INDICATION
     Route: 058
     Dates: start: 20040329, end: 20040404

REACTIONS (4)
  - FEBRILE NEUTROPENIA [None]
  - NEUTROPHIL COUNT DECREASED [None]
  - OBLITERATIVE BRONCHIOLITIS [None]
  - STEVENS-JOHNSON SYNDROME [None]
